FAERS Safety Report 6128986-8 (Version None)
Quarter: 2009Q1

REPORT INFORMATION
  Report Type: 
  Country: None (occurrence: None)
  Receive Date: 20090324
  Receipt Date: 20090313
  Transmission Date: 20090719
  Serious: Yes (Other)
  Sender: FDA-Public Use
  Company Number: PHHY2009NL09449

PATIENT
  Age: 20 Year
  Sex: Male

DRUGS (4)
  1. METHYLPHENIDATE HCL [Suspect]
     Dosage: 28 TABLET
  2. PARACETAMOL [Suspect]
     Dosage: 26X500 MG
  3. IBUPROFEN TABLETS [Suspect]
     Dosage: 12 X 400 MG
  4. ALCOHOL [Suspect]
     Dosage: 6-8 UNITS

REACTIONS (2)
  - DYSARTHRIA [None]
  - OVERDOSE [None]
